FAERS Safety Report 14969322 (Version 1)
Quarter: 2018Q2

REPORT INFORMATION
  Report Type: Spontaneous
  Country: US (occurrence: US)
  Receive Date: 20180511
  Receipt Date: 20180511
  Transmission Date: 20180711
  Serious: Yes (Disabling)
  Sender: FDA-Public Use
  Company Number: None

PATIENT
  Age: 58 Year
  Sex: Female
  Weight: 85.5 kg

DRUGS (1)
  1. CYMBALTA [Suspect]
     Active Substance: DULOXETINE HYDROCHLORIDE
     Indication: DEPRESSION
     Route: 048

REACTIONS (21)
  - Tremor [None]
  - Quality of life decreased [None]
  - Headache [None]
  - Suicidal ideation [None]
  - Palpitations [None]
  - Disturbance in attention [None]
  - Dizziness [None]
  - Vision blurred [None]
  - Fall [None]
  - Fatigue [None]
  - Alopecia [None]
  - Vomiting [None]
  - Hot flush [None]
  - Paraesthesia [None]
  - Hypersomnia [None]
  - Memory impairment [None]
  - Weight decreased [None]
  - Nausea [None]
  - Withdrawal syndrome [None]
  - Pain [None]
  - Hypophagia [None]

NARRATIVE: CASE EVENT DATE: 20170811
